FAERS Safety Report 13504679 (Version 1)
Quarter: 2017Q2

REPORT INFORMATION
  Report Type: Spontaneous
  Country: US (occurrence: US)
  Receive Date: 20170502
  Receipt Date: 20170502
  Transmission Date: 20170830
  Serious: No
  Sender: FDA-Public Use
  Company Number: US-BAYER-2017-083259

PATIENT
  Sex: Female

DRUGS (1)
  1. BETASERON [Suspect]
     Active Substance: INTERFERON BETA-1B
     Dosage: 125 ?G, EVERY 14 DAY
     Route: 058

REACTIONS (3)
  - Circumstance or information capable of leading to medication error [None]
  - Product availability issue [None]
  - Product supply issue [None]
